FAERS Safety Report 20468245 (Version 1)
Quarter: 2022Q1

REPORT INFORMATION
  Report Type: Spontaneous
  Country: BR (occurrence: BR)
  Receive Date: 20220214
  Receipt Date: 20220214
  Transmission Date: 20220423
  Serious: Yes (Life-Threatening, Hospitalization)
  Sender: FDA-Public Use
  Company Number: BR-KOREA IPSEN Pharma-2022-03565

PATIENT
  Age: 64 Year
  Sex: Female

DRUGS (1)
  1. LANREOTIDE ACETATE [Suspect]
     Active Substance: LANREOTIDE ACETATE
     Indication: Product used for unknown indication
     Dosage: DOSE AND FREQUENCY NOT REPORTED
     Route: 058

REACTIONS (1)
  - Intestinal obstruction [Recovered/Resolved]
